FAERS Safety Report 8785677 (Version 1)
Quarter: 2012Q4

REPORT INFORMATION
  Report Type: Report from Study
  Country: ES (occurrence: ES)
  Receive Date: 20120914
  Receipt Date: 20120914
  Transmission Date: 20130627
  Serious: Yes (Other)
  Sender: FDA-Public Use
  Company Number: ES-JNJFOC-20120904453

PATIENT
  Age: 70 Year
  Sex: Female
  Weight: 62 kg

DRUGS (8)
  1. REMICADE [Suspect]
     Indication: RHEUMATOID ARTHRITIS
     Route: 042
     Dates: start: 20000302, end: 20001108
  2. NSAIDS [Concomitant]
  3. OMEPRAZOLE [Concomitant]
  4. OPIOIDS [Concomitant]
  5. ACE INHIBITOR [Concomitant]
  6. ALL OTHER THERAPEUTIC DRUGS [Concomitant]
  7. FOLIC ACID [Concomitant]
  8. BISPHOSPHONATES [Concomitant]

REACTIONS (2)
  - Bursitis [Unknown]
  - Implant site infection [Unknown]
